FAERS Safety Report 6611545-8 (Version None)
Quarter: 2010Q1

REPORT INFORMATION
  Report Type: 
  Country: None (occurrence: None)
  Receive Date: 20100303
  Receipt Date: 20100223
  Transmission Date: 20100710
  Serious: Yes (Death)
  Sender: FDA-Public Use
  Company Number: PHHY2010CA02690

PATIENT
  Sex: Male

DRUGS (1)
  1. ALISKIREN ALI+ [Suspect]
     Dosage: UNK
     Route: 048
     Dates: start: 20090715

REACTIONS (1)
  - MYOCARDIAL INFARCTION [None]
